FAERS Safety Report 10036719 (Version 1)
Quarter: 2014Q1

REPORT INFORMATION
  Report Type: Spontaneous
  Country: KR (occurrence: KR)
  Receive Date: 20140326
  Receipt Date: 20140326
  Transmission Date: 20141002
  Serious: Yes (Other)
  Sender: FDA-Public Use
  Company Number: PHHY2014KR032733

PATIENT
  Age: 68 Year
  Sex: Female

DRUGS (1)
  1. CEFEPIME [Suspect]
     Indication: PNEUMONIA
     Route: 042

REACTIONS (5)
  - Tardive dyskinesia [Recovered/Resolved]
  - Status epilepticus [Recovered/Resolved]
  - Confusional state [Recovered/Resolved]
  - Stupor [Recovered/Resolved]
  - Altered state of consciousness [Recovered/Resolved]
